FAERS Safety Report 6998812-3 (Version None)
Quarter: 2010Q3

REPORT INFORMATION
  Report Type: 
  Country: None (occurrence: None)
  Receive Date: 20100920
  Receipt Date: 20090721
  Transmission Date: 20110219
  Serious: Yes (Other)
  Sender: FDA-Public Use
  Company Number: US-ASTRAZENECA-2007UW04977

PATIENT
  Sex: Female

DRUGS (10)
  1. SEROQUEL [Suspect]
     Indication: SLEEP DISORDER
     Dosage: 25 MG QHS FOR TWO NIGHTS THEN INCREASE TO 50 MG HS, 150 MG QAM AND 400 MG QHS
     Route: 048
     Dates: start: 20030925
  2. SEROQUEL [Suspect]
     Indication: AFFECTIVE DISORDER
     Dosage: 25 MG QHS FOR TWO NIGHTS THEN INCREASE TO 50 MG HS, 150 MG QAM AND 400 MG QHS
     Route: 048
     Dates: start: 20030925
  3. WELLBUTRIN SR [Concomitant]
     Dates: start: 20030305
  4. ZOLOFT [Concomitant]
     Dosage: 150 MG QAM AND 50 MG QNOON
     Dates: start: 20030305
  5. LITHIUM CARBONATE [Concomitant]
     Dosage: 300 MG BID, 300 MG QAM AND 600 MG QHS
     Route: 048
     Dates: start: 20030305
  6. REMERON [Concomitant]
     Dosage: 15-30 MG DAILY
     Dates: start: 20030305
  7. LEVOXYL [Concomitant]
     Dates: start: 20030305
  8. EFFEXOR [Concomitant]
  9. NEURONTIN [Concomitant]
     Dates: start: 20070101
  10. SINGULAIR [Concomitant]
     Dates: start: 20030305

REACTIONS (3)
  - DIABETES MELLITUS [None]
  - DIABETIC KETOACIDOSIS [None]
  - PANCREATITIS [None]
